FAERS Safety Report 12199955 (Version 1)
Quarter: 2016Q1

REPORT INFORMATION
  Report Type: Report from Study
  Country: DE (occurrence: DE)
  Receive Date: 20160322
  Receipt Date: 20160322
  Transmission Date: 20160526
  Serious: Yes (Hospitalization, Other)
  Sender: FDA-Public Use
  Company Number: DE-ELI_LILLY_AND_COMPANY-DE201602004847

PATIENT
  Age: 78 Year
  Sex: Male
  Weight: 79 kg

DRUGS (7)
  1. CETUXIMAB [Suspect]
     Active Substance: CETUXIMAB
     Indication: COLORECTAL CANCER METASTATIC
     Dosage: 500 MG/M2, EVERY TWO WEEKS
     Route: 042
     Dates: start: 20130813, end: 20150824
  2. PARACETAMOL [Concomitant]
     Active Substance: ACETAMINOPHEN
     Indication: PREMEDICATION
     Dosage: ONCE EVERY TWO WEEKS
     Dates: start: 20130813, end: 20150824
  3. FLUOROURACIL. [Suspect]
     Active Substance: FLUOROURACIL
     Indication: COLORECTAL CANCER METASTATIC
     Dosage: 2800 MG/M2, EVERY TWO WEEKS
     Route: 042
     Dates: start: 20130813, end: 20150824
  4. IRINOTECAN [Suspect]
     Active Substance: IRINOTECAN
     Indication: COLORECTAL CANCER METASTATIC
     Dosage: 180 MG/M2, EVERY TWO WEEKS
     Route: 042
     Dates: start: 20130813, end: 20150824
  5. SEROTONIN [Concomitant]
     Active Substance: SEROTONIN
     Indication: PREMEDICATION
     Dosage: ONCE EVERY TWO WEEKS
     Dates: start: 20130813, end: 20150824
  6. ATROPINE. [Concomitant]
     Active Substance: ATROPINE
     Indication: PREMEDICATION
     Dosage: EVERY TWO WEEKS
     Route: 042
     Dates: start: 20130813, end: 20150824
  7. FOLINIC ACID [Concomitant]
     Active Substance: LEUCOVORIN
     Indication: COLORECTAL CANCER METASTATIC
     Dosage: 400 MG/M2, EVERY TWO WEEKS
     Route: 042
     Dates: start: 20130813, end: 20150824

REACTIONS (12)
  - Bone marrow failure [Unknown]
  - Mucosal toxicity [Unknown]
  - Leukopenia [Recovered/Resolved]
  - Atrial fibrillation [Unknown]
  - Prerenal failure [Unknown]
  - Hypokalaemia [Unknown]
  - General physical health deterioration [Not Recovered/Not Resolved]
  - Dehydration [Unknown]
  - Pneumonia [Recovered/Resolved]
  - Dementia [Unknown]
  - Urinary retention [Unknown]
  - Diarrhoea [Unknown]

NARRATIVE: CASE EVENT DATE: 20150902
